FAERS Safety Report 9406904 (Version 2)
Quarter: 2013Q3

REPORT INFORMATION
  Report Type: Spontaneous
  Country: SI (occurrence: SI)
  Receive Date: 20130718
  Receipt Date: 20130821
  Transmission Date: 20140515
  Serious: Yes (Death)
  Sender: FDA-Public Use
  Company Number: PHHY2013SI076336

PATIENT
  Age: 64 Year
  Sex: Male

DRUGS (1)
  1. ONBREZ [Suspect]
     Indication: CHRONIC OBSTRUCTIVE PULMONARY DISEASE
     Dosage: 150 UG, QD
     Dates: start: 20111109

REACTIONS (1)
  - Lung neoplasm malignant [Fatal]
